FAERS Safety Report 8337045-5 (Version None)
Quarter: 2012Q2

REPORT INFORMATION
  Report Type: 
  Country: None (occurrence: None)
  Receive Date: 20120504
  Receipt Date: 20110627
  Transmission Date: 20120825
  Serious: No
  Sender: FDA-Public Use
  Company Number: US-TEVA-2011003373

PATIENT
  Sex: Female
  Weight: 113.5 kg

DRUGS (7)
  1. PAXIL [Concomitant]
     Dates: start: 19900101
  2. ATIVAN [Concomitant]
     Dates: start: 20000101
  3. SINGULAIR [Concomitant]
     Dates: start: 20000101
  4. CALCIUM [Concomitant]
  5. NUVIGIL [Suspect]
     Indication: DEPRESSION
  6. WELLBUTRIN XL [Concomitant]
     Dates: start: 20091001
  7. NUVIGIL [Suspect]
     Indication: SLEEP APNOEA SYNDROME
     Dosage: 150 MILLIGRAM;
     Route: 048
     Dates: start: 20110602, end: 20110612

REACTIONS (3)
  - MOOD ALTERED [None]
  - IRRITABILITY [None]
  - INSOMNIA [None]
